FAERS Safety Report 6084706-7 (Version None)
Quarter: 2009Q1

REPORT INFORMATION
  Report Type: 
  Country: None (occurrence: None)
  Receive Date: 20090219
  Receipt Date: 20090212
  Transmission Date: 20090719
  Serious: Yes (Other)
  Sender: FDA-Public Use
  Company Number: US-PFIZER INC-2009171202

PATIENT
  Sex: Female
  Weight: 69.853 kg

DRUGS (3)
  1. CADUET [Suspect]
     Indication: HYPERTENSION
     Dosage: 5/20 MG, 1X/DAY
     Dates: start: 20040101
  2. CADUET [Suspect]
     Indication: BLOOD CHOLESTEROL INCREASED
  3. VALSARTAN [Concomitant]
     Dosage: UNK

REACTIONS (2)
  - GASTROOESOPHAGEAL REFLUX DISEASE [None]
  - TYPE 2 DIABETES MELLITUS [None]
